FAERS Safety Report 8223255-4 (Version None)
Quarter: 2012Q1

REPORT INFORMATION
  Report Type: 
  Country: None (occurrence: None)
  Receive Date: 20120321
  Receipt Date: 20120307
  Transmission Date: 20120608
  Serious: Yes (Disabling)
  Sender: FDA-Public Use
  Company Number: ES-ROCHE-1047424

PATIENT
  Age: 49 Year

DRUGS (1)
  1. VEMURAFENIB [Suspect]
     Indication: METASTATIC MALIGNANT MELANOMA
     Dosage: LAST DOSE PRIOR TO SAE 23/02/2012
     Route: 048
     Dates: start: 20111230

REACTIONS (1)
  - HEARING IMPAIRED [None]
